FAERS Safety Report 25752615 (Version 3)
Quarter: 2025Q3

REPORT INFORMATION
  Report Type: Report from Study
  Country: US (occurrence: US)
  Receive Date: 20250902
  Receipt Date: 20250922
  Transmission Date: 20251021
  Serious: Yes (Hospitalization)
  Sender: CALLIDITAS THERAPEUTICS AB
  Company Number: US-Calliditas-2025CAL02677

PATIENT
  Age: 54 Year
  Sex: Male

DRUGS (25)
  1. TARPEYO [Suspect]
     Active Substance: BUDESONIDE
     Indication: IgA nephropathy
     Route: 048
     Dates: start: 20250331
  2. TORSEMIDE [Concomitant]
     Active Substance: TORSEMIDE
  3. SODIUM BICARBONATE [Concomitant]
     Active Substance: SODIUM BICARBONATE
  4. COREG [Concomitant]
     Active Substance: CARVEDILOL
  5. PREDNISONE [Concomitant]
     Active Substance: PREDNISONE
  6. PEPCID [Concomitant]
     Active Substance: FAMOTIDINE
  7. MYCOPHENOLIC ACID [Concomitant]
     Active Substance: MYCOPHENOLIC ACID
  8. ERGOCALCIFEROL [Concomitant]
     Active Substance: ERGOCALCIFEROL
  9. VITAMIN B12 [Concomitant]
     Active Substance: CYANOCOBALAMIN
  10. ARIPIPRAZOLE [Concomitant]
     Active Substance: ARIPIPRAZOLE
  11. LORATADINE [Concomitant]
     Active Substance: LORATADINE
  12. PANTOPRAZOLE [Concomitant]
     Active Substance: PANTOPRAZOLE
  13. MIRALAX [Concomitant]
     Active Substance: POLYETHYLENE GLYCOL 3350
  14. OXYBUTYNIN [Concomitant]
     Active Substance: OXYBUTYNIN
  15. CYCLOBENZAPRINE [Concomitant]
     Active Substance: CYCLOBENZAPRINE
  16. ALPRAZOLAM [Concomitant]
     Active Substance: ALPRAZOLAM
  17. VENLAFAXINE [Concomitant]
     Active Substance: VENLAFAXINE HYDROCHLORIDE
  18. METHYLPREDNISOLONE [Concomitant]
     Active Substance: METHYLPREDNISOLONE
  19. ELIQUIS [Concomitant]
     Active Substance: APIXABAN
  20. LIPITOR [Concomitant]
     Active Substance: ATORVASTATIN CALCIUM
  21. VITAMIN D3 [Concomitant]
     Active Substance: CHOLECALCIFEROL
  22. ALLOPURINOL [Concomitant]
     Active Substance: ALLOPURINOL
  23. COLCHICINE [Concomitant]
     Active Substance: COLCHICINE
  24. AMLODIPINE [Concomitant]
     Active Substance: AMLODIPINE BESYLATE
  25. TAMSULOSIN [Concomitant]
     Active Substance: TAMSULOSIN

REACTIONS (9)
  - Sepsis [Recovered/Resolved]
  - Product dose omission issue [Recovered/Resolved]
  - Glomerular filtration rate decreased [Unknown]
  - Underdose [Recovered/Resolved]
  - Urinary tract infection [Recovered/Resolved]
  - Flatulence [Recovered/Resolved]
  - Blood pressure increased [Recovered/Resolved]
  - Loss of consciousness [Recovered/Resolved]
  - Dialysis [Unknown]

NARRATIVE: CASE EVENT DATE: 20250815
